FAERS Safety Report 8856860 (Version 3)
Quarter: 2013Q1

REPORT INFORMATION
  Report Type: Spontaneous
  Country: US (occurrence: None)
  Receive Date: 20121019
  Receipt Date: 20121127
  Transmission Date: 20140127
  Serious: Yes (Disabling, Other)
  Sender: FDA-Public Use
  Company Number: ACO_32555_2012

PATIENT
  Age: 49 Year
  Sex: Female
  Weight: 48.5 kg

DRUGS (21)
  1. AMPYRA [Suspect]
     Indication: GAIT DISTURBANCE
     Route: 048
     Dates: start: 201208, end: 201208
  2. AMPYRA [Suspect]
     Indication: ASTHENIA
     Route: 048
     Dates: start: 201208, end: 201208
  3. TYSABRI (NATALIZUMAB) [Concomitant]
  4. ALL OTHER THERAPEUTIC PRODUCTS [Concomitant]
  5. LIPID MODIFYING AGENTS [Concomitant]
  6. PHENERGAN (PROMETHAZINE HYDROCHLORIDE) [Concomitant]
  7. EVISTA (RALOXIFENE HYDROCHLORIDE) [Concomitant]
  8. NORTRIPTYLINE (NORTRIPTYLINE) [Concomitant]
  9. PAXIL (PAROXETINE HYDROCHLORIDE) [Concomitant]
  10. ALPRAZOLAM (ALPRAZOLAM) [Concomitant]
  11. HYDROXYUREA (HYDROXYCARBAMIDE) [Concomitant]
  12. ELMIRON (PENTOSAN POLYSULFATE SODIUM) [Concomitant]
  13. CIPRO (CIPROFLOXACIN) [Concomitant]
  14. BACLOFEN (BACLOFEN) [Concomitant]
  15. AMANTADINE (AMANTADINE HYDROCHLORIDE) [Concomitant]
  16. ALENDRONATE (ALENDRONATE SODIUM) [Concomitant]
  17. SIMVASTATIN (SIMVASTATIN) [Concomitant]
  18. ZOMIG (ZOLMITRIPTAN) [Concomitant]
  19. TRAZODONE (TRAZODONE) [Concomitant]
  20. ZYRTEC (CETIRIZINE HYDROCHLORIDE) [Concomitant]
  21. ADVAIR (FLUTICASONE PROPIONATE, SALMETEROL XINAFOATE) [Concomitant]

REACTIONS (8)
  - Pharyngeal oedema [None]
  - Oedema mouth [None]
  - Dysphagia [None]
  - Gastritis bacterial [None]
  - Medication error [None]
  - Stomatitis [None]
  - Oral pain [None]
  - Peptic ulcer [None]
